FAERS Safety Report 7314622-1 (Version None)
Quarter: 2011Q1

REPORT INFORMATION
  Report Type: 
  Country: None (occurrence: None)
  Receive Date: 20110225
  Receipt Date: 20101122
  Transmission Date: 20110831
  Serious: No
  Sender: FDA-Public Use
  Company Number: US-MYLANLABS-2010S1019319

PATIENT
  Age: 14 Year
  Sex: Female
  Weight: 48.99 kg

DRUGS (4)
  1. AMNESTEEM [Suspect]
     Indication: ACNE CYSTIC
     Route: 048
     Dates: start: 20100727, end: 20101018
  2. AMNESTEEM [Suspect]
     Route: 048
     Dates: start: 20100726, end: 20101018
  3. ORTHO TRI-CYCLEN [Concomitant]
     Dates: start: 20100701
  4. ADVAIR DISKUS 100/50 [Concomitant]
     Indication: ASTHMA
     Dates: start: 20020101

REACTIONS (3)
  - AMNESIA [None]
  - BLOOD CHOLESTEROL INCREASED [None]
  - EDUCATIONAL PROBLEM [None]
